FAERS Safety Report 7382664-6 (Version None)
Quarter: 2011Q1

REPORT INFORMATION
  Report Type: 
  Country: None (occurrence: None)
  Receive Date: 20110329
  Receipt Date: 20110328
  Transmission Date: 20110831
  Serious: Yes (Hospitalization, Other)
  Sender: FDA-Public Use
  Company Number: FR-ABBOTT-08P-056-0463983-00

PATIENT
  Sex: Male
  Weight: 3.19 kg

DRUGS (7)
  1. KALETRA [Suspect]
     Indication: PROPHYLAXIS
     Route: 048
     Dates: start: 20080518, end: 20080609
  2. KALETRA [Suspect]
     Indication: HUMAN IMMUNODEFICIENCY VIRUS TRANSMISSION
     Dosage: 40 MG/KG, 128 MG TOTAL, DAILY
     Route: 048
     Dates: start: 20080518, end: 20080608
  3. MICONAZOLE [Concomitant]
     Indication: CANDIDIASIS
     Dates: start: 20080604
  4. COLECALCIFEROL [Concomitant]
     Indication: PRODUCT USED FOR UNKNOWN INDICATION
  5. NYSTATINE [Concomitant]
     Indication: CANDIDIASIS
     Dates: start: 20080604
  6. ECONAZOLE NITRATE [Concomitant]
     Indication: FUNGAL INFECTION
  7. KALETRA [Suspect]
     Indication: DRUG EXPOSURE DURING PREGNANCY
     Route: 064

REACTIONS (12)
  - BLOOD CREATININE INCREASED [None]
  - SOMNOLENCE [None]
  - DYSPNOEA [None]
  - FEEDING DISORDER NEONATAL [None]
  - TOXICITY TO VARIOUS AGENTS [None]
  - ALTERED STATE OF CONSCIOUSNESS [None]
  - VOMITING [None]
  - DRUG EXPOSURE DURING PREGNANCY [None]
  - ASTHENIA [None]
  - ACCIDENTAL OVERDOSE [None]
  - WEIGHT GAIN POOR [None]
  - WHEEZING [None]
